FAERS Safety Report 14406286 (Version 1)
Quarter: 2018Q1

REPORT INFORMATION
  Report Type: Spontaneous
  Country: US (occurrence: US)
  Receive Date: 20180116
  Receipt Date: 20180116
  Transmission Date: 20180509
  Serious: No
  Sender: FDA-Public Use
  Company Number: None

PATIENT
  Age: 38 Year
  Sex: Male

DRUGS (1)
  1. COSENTYX [Suspect]
     Active Substance: SECUKINUMAB

REACTIONS (6)
  - Conjunctivitis [None]
  - Influenza [None]
  - Infectious mononucleosis [None]
  - Insurance issue [None]
  - Sinusitis [None]
  - Immune system disorder [None]

NARRATIVE: CASE EVENT DATE: 20170901
